FAERS Safety Report 9910017 (Version 2)
Quarter: 2014Q1

REPORT INFORMATION
  Report Type: Spontaneous
  Country: US (occurrence: None)
  Receive Date: 20140210
  Receipt Date: 20140210
  Transmission Date: 20141002
  Serious: Yes (Death)
  Sender: FDA-Public Use
  Company Number: 2014-US-001266

PATIENT
  Age: 51 Year
  Sex: Male

DRUGS (11)
  1. FAZACLO ODT CLOZAPINE [Suspect]
     Route: 048
     Dates: start: 20080218, end: 20140121
  2. RISPERDAL CONSTA (RISPERIDONE) [Concomitant]
  3. ATENOLOL [Concomitant]
  4. LEVOTHYROXINE SODIUM [Concomitant]
  5. DOCUSATE SODIUM [Concomitant]
  6. ASPIRIN (ACETYLSALICYLIC ACID) [Concomitant]
  7. OXYBUTYNIN CHLORIDE (OXYBUTYNIN HYDROCHLORIDE) [Concomitant]
  8. MULTIVITAMIN [Concomitant]
  9. AZITHROMYCIN [Concomitant]
  10. VENTOLIN HFA (SALBUTAMOL SULFATE) [Concomitant]
  11. CIPROFLOXACIN (CIPROFLOXACIN LACTATE) [Concomitant]

REACTIONS (1)
  - Pneumonia [None]
